FAERS Safety Report 15966544 (Version 4)
Quarter: 2024Q4

REPORT INFORMATION
  Report Type: Spontaneous
  Country: JP (occurrence: JP)
  Receive Date: 20190215
  Receipt Date: 20241021
  Transmission Date: 20250114
  Serious: Yes (Life-Threatening, Hospitalization, Other)
  Sender: PFIZER
  Company Number: JP-TEVA-2019-JP-1010497

PATIENT
  Age: 64 Year
  Sex: Male

DRUGS (3)
  1. DOCETAXEL [Suspect]
     Active Substance: DOCETAXEL
     Indication: Squamous cell carcinoma of the hypopharynx
     Dosage: UNK (ONE COURSE OF INDUCTION CHEMOTHERAPY)
     Route: 065
  2. CISPLATIN [Suspect]
     Active Substance: CISPLATIN
     Indication: Squamous cell carcinoma of the hypopharynx
     Dosage: UNK (ONE COURSE OF INDUCTION CHEMOTHERAPY)
     Route: 065
  3. FLUOROURACIL [Suspect]
     Active Substance: FLUOROURACIL
     Indication: Squamous cell carcinoma of the hypopharynx
     Dosage: UNK (ONE COURSE OF INDUCTION CHEMOTHERAPY)
     Route: 065

REACTIONS (3)
  - Bacterial translocation [Recovered/Resolved]
  - Septic shock [Recovered/Resolved]
  - Enterobacter infection [Recovered/Resolved]
